FAERS Safety Report 20800487 (Version 1)
Quarter: 2022Q2

REPORT INFORMATION
  Report Type: Spontaneous
  Country: BR (occurrence: BR)
  Receive Date: 20220509
  Receipt Date: 20220509
  Transmission Date: 20220721
  Serious: Yes (Death, Life-Threatening, Hospitalization, Other)
  Sender: FDA-Public Use
  Company Number: BR-LUPIN PHARMACEUTICALS INC.-2022-06664

PATIENT
  Age: 32 Year
  Sex: Male

DRUGS (8)
  1. CEFTRIAXONE [Suspect]
     Active Substance: CEFTRIAXONE
     Indication: Cutaneous loxoscelism
     Dosage: UNK
     Route: 065
  2. AZITHROMYCIN [Suspect]
     Active Substance: AZITHROMYCIN
     Indication: Cutaneous loxoscelism
     Dosage: UNK
     Route: 065
  3. VANCOMYCIN [Suspect]
     Active Substance: VANCOMYCIN
     Indication: Staphylococcal infection
     Dosage: UNK
     Route: 065
  4. DEXAMETHASONE [Suspect]
     Active Substance: DEXAMETHASONE
     Indication: Cutaneous loxoscelism
     Dosage: UNK
     Route: 065
  5. ENOXAPARIN [Suspect]
     Active Substance: ENOXAPARIN
     Indication: Cutaneous loxoscelism
     Dosage: UNK
     Route: 065
  6. CLINDAMYCIN [Suspect]
     Active Substance: CLINDAMYCIN
     Indication: Staphylococcal infection
     Dosage: UNK
     Route: 065
  7. CLINDAMYCIN [Suspect]
     Active Substance: CLINDAMYCIN
     Indication: Cutaneous loxoscelism
  8. OXYGEN [Suspect]
     Active Substance: OXYGEN
     Indication: Dyspnoea
     Dosage: UNK, OXYGEN SUPPORT WITH A NASAL CATHETER AT LOW FLOW (1-2 L)
     Route: 045

REACTIONS (13)
  - Cardio-respiratory arrest [Fatal]
  - Acute kidney injury [Unknown]
  - Respiratory distress [Unknown]
  - Tachypnoea [Unknown]
  - Hypoxia [Unknown]
  - Pulmonary sepsis [Unknown]
  - Soft tissue infection [Unknown]
  - Sepsis [Unknown]
  - Staphylococcal sepsis [Unknown]
  - Pneumonia [Unknown]
  - Haemodynamic instability [Unknown]
  - Drug ineffective for unapproved indication [Unknown]
  - Off label use [Unknown]
